FAERS Safety Report 14707503 (Version 3)
Quarter: 2018Q2

REPORT INFORMATION
  Report Type: Report from Study
  Country: CA (occurrence: CA)
  Receive Date: 20180403
  Receipt Date: 20180418
  Transmission Date: 20180711
  Serious: Yes (Other)
  Sender: FDA-Public Use
  Company Number: CA-AMGEN-CANSL2018043496

PATIENT
  Age: 78 Year
  Sex: Female
  Weight: 61 kg

DRUGS (1)
  1. KYPROLIS [Suspect]
     Active Substance: CARFILZOMIB
     Indication: PLASMA CELL MYELOMA
     Dosage: 30 MG, 2 DAYS A WEEK FOR 3 WEEKS WITH ONE WEEK OFF
     Route: 042
     Dates: start: 201710

REACTIONS (3)
  - Oxygen saturation abnormal [Unknown]
  - Dyspnoea exertional [Unknown]
  - Transfusion [Unknown]

NARRATIVE: CASE EVENT DATE: 20180329
